FAERS Safety Report 4936626-6 (Version None)
Quarter: 2006Q1

REPORT INFORMATION
  Report Type: 
  Country: None (occurrence: None)
  Receive Date: 20060303
  Receipt Date: 20060221
  Transmission Date: 20060701
  Serious: Yes (Other)
  Sender: FDA-Public Use
  Company Number: PR-2006-003487

PATIENT
  Age: 40 Year
  Sex: Female
  Weight: 61 kg

DRUGS (1)
  1. ULTRAVIST 300 [Suspect]
     Indication: COMPUTERISED TOMOGRAM ABDOMEN
     Dosage: 100 ML, 1 DOSE, INTRAVENOUS
     Route: 042
     Dates: start: 20050527, end: 20050527

REACTIONS (6)
  - COUGH [None]
  - DYSPHAGIA [None]
  - DYSPHONIA [None]
  - POST PROCEDURAL COMPLICATION [None]
  - TREMOR [None]
  - VOMITING [None]
